FAERS Safety Report 5365574-5 (Version None)
Quarter: 2007Q2

REPORT INFORMATION
  Report Type: 
  Country: None (occurrence: None)
  Receive Date: 20070621
  Receipt Date: 20070614
  Transmission Date: 20071010
  Serious: Yes (Other)
  Sender: FDA-Public Use
  Company Number: BE-ASTRAZENECA-2007AC01031

PATIENT
  Age: 47 Year
  Sex: Male
  Weight: 89 kg

DRUGS (2)
  1. CRESTOR [Suspect]
     Indication: HYPERCHOLESTEROLAEMIA
     Route: 048
     Dates: start: 20070401
  2. ASAFLOW 80 [Concomitant]
     Indication: PROPHYLAXIS
     Route: 048
     Dates: start: 20070401

REACTIONS (1)
  - TENDONITIS [None]
